FAERS Safety Report 21835390 (Version 2)
Quarter: 2023Q1

REPORT INFORMATION
  Report Type: Report from Study
  Country: US (occurrence: US)
  Receive Date: 20230109
  Receipt Date: 20230113
  Transmission Date: 20230417
  Serious: Yes (Hospitalization, Other)
  Sender: FDA-Public Use
  Company Number: US-TAKEDA-2022TUS067160

PATIENT
  Age: 69 Year
  Sex: Female
  Weight: 46.25 kg

DRUGS (20)
  1. TEDUGLUTIDE [Suspect]
     Active Substance: TEDUGLUTIDE
     Indication: Short-bowel syndrome
     Dosage: 0.25 MILLILITER, QD
     Route: 058
     Dates: start: 20220812, end: 20221221
  2. TEDUGLUTIDE [Suspect]
     Active Substance: TEDUGLUTIDE
     Indication: Short-bowel syndrome
     Dosage: 0.25 MILLILITER, QD
     Route: 058
     Dates: start: 20220812, end: 20221221
  3. TEDUGLUTIDE [Suspect]
     Active Substance: TEDUGLUTIDE
     Indication: Short-bowel syndrome
     Dosage: 0.25 MILLILITER, QD
     Route: 058
     Dates: start: 20220812, end: 20221221
  4. TEDUGLUTIDE [Suspect]
     Active Substance: TEDUGLUTIDE
     Indication: Short-bowel syndrome
     Dosage: 0.25 MILLILITER, QD
     Route: 058
     Dates: start: 20220812, end: 20221221
  5. TEDUGLUTIDE [Suspect]
     Active Substance: TEDUGLUTIDE
     Indication: Gastrointestinal inflammation
     Dosage: 0.25 MILLILITER, QD
     Route: 058
     Dates: start: 20220818
  6. TEDUGLUTIDE [Suspect]
     Active Substance: TEDUGLUTIDE
     Indication: Gastrointestinal inflammation
     Dosage: 0.25 MILLILITER, QD
     Route: 058
     Dates: start: 20220818
  7. TEDUGLUTIDE [Suspect]
     Active Substance: TEDUGLUTIDE
     Indication: Gastrointestinal inflammation
     Dosage: 0.25 MILLILITER, QD
     Route: 058
     Dates: start: 20220818
  8. TEDUGLUTIDE [Suspect]
     Active Substance: TEDUGLUTIDE
     Indication: Gastrointestinal inflammation
     Dosage: 0.25 MILLILITER, QD
     Route: 058
     Dates: start: 20220818
  9. TEDUGLUTIDE [Suspect]
     Active Substance: TEDUGLUTIDE
     Indication: Colitis
     Dosage: 2.5 MILLIGRAM, QD
     Route: 058
     Dates: start: 20220818
  10. TEDUGLUTIDE [Suspect]
     Active Substance: TEDUGLUTIDE
     Indication: Colitis
     Dosage: 2.5 MILLIGRAM, QD
     Route: 058
     Dates: start: 20220818
  11. TEDUGLUTIDE [Suspect]
     Active Substance: TEDUGLUTIDE
     Indication: Colitis
     Dosage: 2.5 MILLIGRAM, QD
     Route: 058
     Dates: start: 20220818
  12. TEDUGLUTIDE [Suspect]
     Active Substance: TEDUGLUTIDE
     Indication: Colitis
     Dosage: 2.5 MILLIGRAM, QD
     Route: 058
     Dates: start: 20220818
  13. TEDUGLUTIDE [Suspect]
     Active Substance: TEDUGLUTIDE
     Dosage: 2.5 MILLIGRAM, QD
     Route: 058
     Dates: start: 20220825
  14. TEDUGLUTIDE [Suspect]
     Active Substance: TEDUGLUTIDE
     Dosage: 2.5 MILLIGRAM, QD
     Route: 058
     Dates: start: 20220825
  15. TEDUGLUTIDE [Suspect]
     Active Substance: TEDUGLUTIDE
     Dosage: 2.5 MILLIGRAM, QD
     Route: 058
     Dates: start: 20220825
  16. TEDUGLUTIDE [Suspect]
     Active Substance: TEDUGLUTIDE
     Dosage: 2.5 MILLIGRAM, QD
     Route: 058
     Dates: start: 20220825
  17. TEDUGLUTIDE [Suspect]
     Active Substance: TEDUGLUTIDE
     Dosage: 0.25 MILLILITER, QD
     Route: 058
     Dates: start: 202208
  18. TEDUGLUTIDE [Suspect]
     Active Substance: TEDUGLUTIDE
     Dosage: 0.25 MILLILITER, QD
     Route: 058
     Dates: start: 202208
  19. TEDUGLUTIDE [Suspect]
     Active Substance: TEDUGLUTIDE
     Dosage: 0.25 MILLILITER, QD
     Route: 058
     Dates: start: 202208
  20. TEDUGLUTIDE [Suspect]
     Active Substance: TEDUGLUTIDE
     Dosage: 0.25 MILLILITER, QD
     Route: 058
     Dates: start: 202208

REACTIONS (9)
  - Thrombosis [Unknown]
  - Pleural effusion [Unknown]
  - Muscle spasms [Unknown]
  - Diarrhoea [Recovering/Resolving]
  - Musculoskeletal chest pain [Unknown]
  - Gallbladder disorder [Unknown]
  - Vomiting [Unknown]
  - Nausea [Unknown]
  - Product use in unapproved indication [Unknown]

NARRATIVE: CASE EVENT DATE: 20220818
